FAERS Safety Report 18959018 (Version 1)
Quarter: 2021Q1

REPORT INFORMATION
  Report Type: Spontaneous
  Country: AU (occurrence: AU)
  Receive Date: 20210302
  Receipt Date: 20210302
  Transmission Date: 20210420
  Serious: Yes (Hospitalization)
  Sender: FDA-Public Use
  Company Number: AU-PFIZER INC-R1H190

PATIENT
  Age: 23 Year
  Sex: Female

DRUGS (8)
  1. FLUCONAZOLE. [Interacting]
     Active Substance: FLUCONAZOLE
     Dosage: 200 MG, DAILY
  2. PETHIDINE [Concomitant]
     Active Substance: MEPERIDINE
     Indication: ANALGESIC THERAPY
     Dosage: UNK
     Route: 030
  3. PHENYTOIN. [Interacting]
     Active Substance: PHENYTOIN
     Dosage: 500 MG, DAILY
  4. IMIPENEM [Concomitant]
     Active Substance: IMIPENEM
     Dosage: 500 MG, 4X/DAY
     Route: 042
  5. FERROUS GLUCONATE [Concomitant]
     Active Substance: FERROUS GLUCONATE
     Dosage: 300 MG, 3X/DAY
  6. AMMONIUM CHLORIDE. [Concomitant]
     Active Substance: AMMONIUM CHLORIDE
     Dosage: 1000 MG, 2X/DAY
     Route: 048
  7. FLUCONAZOLE. [Suspect]
     Active Substance: FLUCONAZOLE
     Indication: CANDIDA INFECTION
     Dosage: 100 MG, DAILY
  8. HEXAMINE HIPPURATE [Concomitant]
     Dosage: 1000 MG, 4X/DAY
     Route: 048

REACTIONS (11)
  - Somnolence [Unknown]
  - Dizziness [Unknown]
  - Nausea [Unknown]
  - Hyperreflexia [Unknown]
  - Diplopia [Unknown]
  - Nystagmus [Unknown]
  - Vomiting [Unknown]
  - Drug interaction [Unknown]
  - Toxicity to various agents [Unknown]
  - Hyperhidrosis [Unknown]
  - Coordination abnormal [Unknown]
